FAERS Safety Report 7733763 (Version 3)
Quarter: 2012Q4

REPORT INFORMATION
  Report Type: Report from Study
  Country: AT (occurrence: AT)
  Receive Date: 20101223
  Receipt Date: 20121220
  Transmission Date: 20130627
  Serious: Yes (Disabling)
  Sender: FDA-Public Use
  Company Number: AT-B.I. PHARMACEUTICALS,INC./RIDGEFIELD-2010-DE-07047DE

PATIENT
  Age: 83 Year
  Sex: Female
  Weight: 64 kg

DRUGS (6)
  1. DABIGATRAN [Suspect]
     Indication: CEREBROVASCULAR ACCIDENT PROPHYLAXIS
     Dosage: dosing blinded
     Route: 048
     Dates: start: 20070920, end: 20100720
  2. DABIGATRAN [Suspect]
     Indication: ATRIAL FIBRILLATION
  3. OLMETEC [Concomitant]
     Indication: HYPERTENSION
     Dosage: 20/12.5 mg
     Route: 048
  4. OLMETEC [Concomitant]
     Dosage: 10 mg
     Route: 048
  5. DOXAZOSIN [Concomitant]
     Indication: HYPERTENSION
     Dosage: 4 mg
     Route: 048
  6. TRAMABENE [Concomitant]
     Indication: PAIN
     Dosage: 50 mg
     Route: 048

REACTIONS (2)
  - Haematoma [Recovered/Resolved]
  - Fall [Recovered/Resolved]
